FAERS Safety Report 16693266 (Version 2)
Quarter: 2019Q3

REPORT INFORMATION
  Report Type: Report from Study
  Country: JP (occurrence: JP)
  Receive Date: 20190812
  Receipt Date: 20190813
  Transmission Date: 20191004
  Serious: Yes (Other)
  Sender: FDA-Public Use
  Company Number: JP-PFIZER INC-2019339613

PATIENT
  Age: 50 Year
  Sex: Female

DRUGS (7)
  1. PREDNISOLONE. [Concomitant]
     Active Substance: PREDNISOLONE
     Indication: SCLERITIS
     Dosage: 40 MG, UNK (INCREASED)
  2. INFLIXIMAB [Suspect]
     Active Substance: INFLIXIMAB
     Indication: SCLERITIS
     Dosage: 5 MG/KG, UNK (INFUSIONS, EVERY 8 WEEKS)
  3. METHOTREXATE SODIUM. [Concomitant]
     Active Substance: METHOTREXATE SODIUM
     Indication: SCLERITIS
     Dosage: UNK
  4. CYCLOSPORINE. [Concomitant]
     Active Substance: CYCLOSPORINE
     Indication: SCLERITIS
     Dosage: UNK
  5. METHOTREXATE SODIUM. [Concomitant]
     Active Substance: METHOTREXATE SODIUM
     Indication: SCLERITIS
  6. PREDNISOLONE. [Concomitant]
     Active Substance: PREDNISOLONE
     Indication: SCLERITIS
     Dosage: UNK
  7. CYCLOSPORINE. [Concomitant]
     Active Substance: CYCLOSPORINE
     Indication: SCLERITIS

REACTIONS (5)
  - Vitritis [Recovered/Resolved]
  - Scleritis [Recovered/Resolved]
  - Eye inflammation [Unknown]
  - Visual acuity reduced [Unknown]
  - Condition aggravated [Recovered/Resolved]
